FAERS Safety Report 8616921 (Version 4)
Quarter: 2012Q4

REPORT INFORMATION
  Report Type: Report from Study
  Country: ES (occurrence: ES)
  Receive Date: 20120615
  Receipt Date: 20121221
  Transmission Date: 20130627
  Serious: Yes (Hospitalization, Other)
  Sender: FDA-Public Use
  Company Number: PHHO2010ES02722

PATIENT
  Age: 43 Year
  Sex: Male
  Weight: 76 kg

DRUGS (5)
  1. FTY 720 [Suspect]
     Indication: MULTIPLE SCLEROSIS
     Dosage: 1.25 mg, QD
     Route: 048
     Dates: start: 20090312, end: 20100217
  2. PARACETAMOL [Concomitant]
  3. IBUPROFEN [Concomitant]
  4. ATARAX [Concomitant]
  5. PEITEL [Concomitant]

REACTIONS (3)
  - Central nervous system lesion [Recovered/Resolved]
  - Cerebral haematoma [Recovered/Resolved]
  - Brain oedema [Recovered/Resolved]
